FAERS Safety Report 5140121-1 (Version None)
Quarter: 2006Q4

REPORT INFORMATION
  Report Type: 
  Country: None (occurrence: None)
  Receive Date: 20061031
  Receipt Date: 20060905
  Transmission Date: 20070319
  Serious: Yes (Other)
  Sender: FDA-Public Use
  Company Number: DE-ROCHE-461909

PATIENT
  Age: 38 Year
  Sex: Male
  Weight: 87 kg

DRUGS (6)
  1. FUZEON [Suspect]
     Indication: HIV INFECTION
     Route: 058
     Dates: start: 20060904, end: 20060904
  2. FUZEON [Suspect]
     Route: 058
     Dates: start: 20060911, end: 20060911
  3. TMC114 [Concomitant]
     Route: 048
     Dates: start: 20060904
  4. TRIZIVIR [Concomitant]
     Dosage: DOSAGE REGIMEN REPORTED AS TWO TABLETS PER DAY.
     Route: 048
     Dates: start: 20050215
  5. VIREAD [Concomitant]
     Route: 048
     Dates: start: 20041215
  6. NORVIR [Concomitant]
     Route: 048
     Dates: start: 20060904

REACTIONS (3)
  - C-REACTIVE PROTEIN INCREASED [None]
  - CHILLS [None]
  - PYREXIA [None]
